FAERS Safety Report 8560736-8 (Version None)
Quarter: 2012Q3

REPORT INFORMATION
  Report Type: 
  Country: None (occurrence: None)
  Receive Date: 20120802
  Receipt Date: 20120730
  Transmission Date: 20120928
  Serious: Yes (Other)
  Sender: FDA-Public Use
  Company Number: PHEH2012US010941

PATIENT
  Sex: Male
  Weight: 83.46 kg

DRUGS (1)
  1. GILENYA [Suspect]
     Indication: MULTIPLE SCLEROSIS
     Dosage: 0.5 MG, QD
     Route: 048
     Dates: start: 20120411, end: 20120601

REACTIONS (9)
  - BACK PAIN [None]
  - ASPARTATE AMINOTRANSFERASE INCREASED [None]
  - ALANINE AMINOTRANSFERASE INCREASED [None]
  - CHROMATURIA [None]
  - NAUSEA [None]
  - VOMITING [None]
  - FATIGUE [None]
  - HEPATIC FUNCTION ABNORMAL [None]
  - HEADACHE [None]
